FAERS Safety Report 12029164 (Version 1)
Quarter: 2016Q1

REPORT INFORMATION
  Report Type: Report from Study
  Country: US (occurrence: US)
  Receive Date: 20160207
  Receipt Date: 20160207
  Transmission Date: 20160526
  Serious: No
  Sender: FDA-Public Use
  Company Number: US-ABBVIE-15K-163-1496761-00

PATIENT
  Sex: Female
  Weight: 72.64 kg

DRUGS (11)
  1. SULFASALAZINE. [Concomitant]
     Active Substance: SULFASALAZINE
     Indication: RHEUMATOID ARTHRITIS
  2. HYDROXYCHLOROQUINE [Concomitant]
     Active Substance: HYDROXYCHLOROQUINE
     Indication: RHEUMATOID ARTHRITIS
  3. TRAMADOL. [Concomitant]
     Active Substance: TRAMADOL
     Indication: ARTHRALGIA
  4. HYDROCODONE [Concomitant]
     Active Substance: HYDROCODONE
     Indication: PAIN
  5. HUMIRA [Suspect]
     Active Substance: ADALIMUMAB
     Route: 058
     Dates: start: 201508
  6. OMEPRAZOLE. [Concomitant]
     Active Substance: OMEPRAZOLE
     Indication: EPIGASTRIC DISCOMFORT
  7. TRAMADOL. [Concomitant]
     Active Substance: TRAMADOL
     Indication: SPINAL COLUMN STENOSIS
  8. INDOMETHACIN. [Concomitant]
     Active Substance: INDOMETHACIN
     Indication: RHEUMATOID ARTHRITIS
  9. GABAPENTIN. [Concomitant]
     Active Substance: GABAPENTIN
     Indication: PAIN IN EXTREMITY
  10. TRAMADOL. [Concomitant]
     Active Substance: TRAMADOL
     Indication: SPINAL PAIN
  11. HUMIRA [Suspect]
     Active Substance: ADALIMUMAB
     Indication: RHEUMATOID ARTHRITIS
     Route: 058
     Dates: end: 201508

REACTIONS (3)
  - Injection site pain [Not Recovered/Not Resolved]
  - Rheumatoid arthritis [Recovering/Resolving]
  - Inappropriate schedule of drug administration [Not Recovered/Not Resolved]

NARRATIVE: CASE EVENT DATE: 2015
